FAERS Safety Report 16317239 (Version 3)
Quarter: 2019Q2

REPORT INFORMATION
  Report Type: Spontaneous
  Country: US (occurrence: US)
  Receive Date: 20190515
  Receipt Date: 20190613
  Transmission Date: 20190711
  Serious: No
  Sender: FDA-Public Use
  Company Number: US-SA-2019SA131581

PATIENT
  Age: 85 Year
  Sex: Female

DRUGS (1)
  1. LANTUS SOLOSTAR [Suspect]
     Active Substance: INSULIN GLARGINE
     Indication: DIABETES MELLITUS
     Dosage: 14 U, QD
     Route: 065

REACTIONS (3)
  - Blood glucose increased [Unknown]
  - Cardiac stress test abnormal [Recovered/Resolved]
  - Dry eye [Recovered/Resolved]
